FAERS Safety Report 11841169 (Version 1)
Quarter: 2015Q4

REPORT INFORMATION
  Report Type: Spontaneous
  Country: US (occurrence: US)
  Receive Date: 20151216
  Receipt Date: 20151216
  Transmission Date: 20160305
  Serious: No
  Sender: FDA-Public Use
  Company Number: US-MYLANLABS-2015M1029787

PATIENT
  Sex: Male
  Weight: 111.11 kg

DRUGS (1)
  1. MORPHINE [Suspect]
     Active Substance: MORPHINE
     Dosage: 60 MG, TID

REACTIONS (4)
  - Pruritus [Unknown]
  - Constipation [Unknown]
  - Erectile dysfunction [Unknown]
  - Rash [Unknown]
